FAERS Safety Report 13663345 (Version 1)
Quarter: 2017Q2

REPORT INFORMATION
  Report Type: Spontaneous
  Country: US (occurrence: US)
  Receive Date: 20170619
  Receipt Date: 20170619
  Transmission Date: 20170830
  Serious: Yes (Hospitalization, Other)
  Sender: FDA-Public Use
  Company Number: US-TAKEDA-2017TUS013144

PATIENT
  Sex: Female

DRUGS (1)
  1. ENTYVIO [Suspect]
     Active Substance: VEDOLIZUMAB
     Indication: COLITIS ULCERATIVE
     Dosage: UNK
     Route: 065

REACTIONS (6)
  - Rash [Recovered/Resolved]
  - Diverticulitis [Unknown]
  - Small intestinal obstruction [Unknown]
  - Large intestine perforation [Unknown]
  - Urinary tract disorder [Recovered/Resolved]
  - Agitation [Recovered/Resolved]
